FAERS Safety Report 16041399 (Version 1)
Quarter: 2019Q2

REPORT INFORMATION
  Report Type: Spontaneous
  Country: US (occurrence: US)
  Receive Date: 20190305
  Receipt Date: 20190305
  Transmission Date: 20190711
  Serious: Yes (Hospitalization)
  Sender: FDA-Public Use
  Company Number: None

PATIENT
  Age: 38 Year
  Sex: Female

DRUGS (2)
  1. LETROZOLE 2.5MG TABLETS [Concomitant]
     Active Substance: LETROZOLE
     Dates: start: 20180130
  2. IBRANCE [Suspect]
     Active Substance: PALBOCICLIB
     Indication: BREAST CANCER
     Dosage: ?          OTHER FREQUENCY:DAILY FOR 21 DAYS,;?
     Route: 048

REACTIONS (2)
  - White blood cell count decreased [None]
  - Influenza [None]

NARRATIVE: CASE EVENT DATE: 20190214
